FAERS Safety Report 9527521 (Version 1)
Quarter: 2013Q3

REPORT INFORMATION
  Report Type: Spontaneous
  Country: US (occurrence: None)
  Receive Date: 20130913
  Receipt Date: 20130913
  Transmission Date: 20140515
  Serious: No
  Sender: FDA-Public Use
  Company Number: None

PATIENT
  Sex: 0

DRUGS (8)
  1. LAMOTRIGINE [Suspect]
     Indication: AFFECT LABILITY
     Route: 048
     Dates: start: 20130810, end: 20130817
  2. LAMOTRIGINE [Suspect]
     Indication: DEPRESSION
     Route: 048
     Dates: start: 20130810, end: 20130817
  3. LAMICTAL [Concomitant]
  4. REMERON [Concomitant]
  5. SEROQUEL [Concomitant]
  6. KLONOPIN [Concomitant]
  7. NORVASC [Concomitant]
  8. LIPITOR [Concomitant]

REACTIONS (2)
  - Product substitution issue [None]
  - Anxiety [None]
